FAERS Safety Report 5920947-4 (Version None)
Quarter: 2008Q4

REPORT INFORMATION
  Report Type: 
  Country: None (occurrence: None)
  Receive Date: 20081016
  Receipt Date: 20081003
  Transmission Date: 20090506
  Serious: Yes (Death)
  Sender: FDA-Public Use
  Company Number: US-JNJFOC-20081003052

PATIENT
  Age: 7 Decade
  Sex: Male

DRUGS (1)
  1. HALDOL [Suspect]
     Indication: AGITATION
     Dosage: 2 DOSES ADMINISTERED. SECOND DOSE GIVEN, THREE HOURS AFTER THE INITIAL DOSE
     Route: 030

REACTIONS (4)
  - DRUG INEFFECTIVE [None]
  - NEUROLEPTIC MALIGNANT SYNDROME [None]
  - PSYCHOTIC DISORDER [None]
  - RESPIRATORY ARREST [None]
